FAERS Safety Report 15123593 (Version 2)
Quarter: 2018Q3

REPORT INFORMATION
  Report Type: Report from Study
  Country: FR (occurrence: FR)
  Receive Date: 20180710
  Receipt Date: 20180718
  Transmission Date: 20181010
  Serious: Yes (Hospitalization)
  Sender: FDA-Public Use
  Company Number: FR-ROCHE-2150783

PATIENT
  Age: 47 Year
  Sex: Male
  Weight: 50 kg

DRUGS (6)
  1. MELPHALAN. [Concomitant]
     Active Substance: MELPHALAN
     Indication: LYMPHOMA
     Route: 065
     Dates: start: 20180516, end: 20180522
  2. OBINUTUZUMAB. [Suspect]
     Active Substance: OBINUTUZUMAB
     Indication: MANTLE CELL LYMPHOMA
     Dosage: CID1: 29/JAN/2018?LAST DOSE OF OBINUTUZUMAB 1000 MG PRIOR TO SAE ON16/MAY/2018
     Route: 065
     Dates: start: 20180129
  3. VALACICLOVIR [Concomitant]
     Active Substance: VALACYCLOVIR HYDROCHLORIDE
     Indication: PREMEDICATION
     Route: 065
     Dates: start: 20180129, end: 20180622
  4. BICNU [Concomitant]
     Active Substance: CARMUSTINE
     Indication: LYMPHOMA
     Route: 065
     Dates: start: 20180516, end: 20180522
  5. ARA?C [Concomitant]
     Active Substance: CYTARABINE
     Indication: LYMPHOMA
     Route: 065
     Dates: start: 20180516, end: 20180522
  6. ETOPOSIDE. [Concomitant]
     Active Substance: ETOPOSIDE
     Indication: LYMPHOMA
     Route: 065
     Dates: start: 20180516, end: 20180522

REACTIONS (1)
  - Nephritis allergic [Not Recovered/Not Resolved]

NARRATIVE: CASE EVENT DATE: 20180622
